FAERS Safety Report 7146553-4 (Version None)
Quarter: 2010Q4

REPORT INFORMATION
  Report Type: 
  Country: None (occurrence: None)
  Receive Date: 20101208
  Receipt Date: 20101125
  Transmission Date: 20110411
  Serious: Yes (Congenital Anomaly)
  Sender: FDA-Public Use
  Company Number: FR-MYLANLABS-2010S1021950

PATIENT
  Sex: Male

DRUGS (2)
  1. VALPROIC ACID [Suspect]
     Indication: EPILEPSY
     Route: 064
  2. PHENOBARBITAL [Concomitant]
     Indication: EPILEPSY
     Route: 064

REACTIONS (6)
  - ADACTYLY [None]
  - DRUG EXPOSURE DURING PREGNANCY [None]
  - FOETAL ANTICONVULSANT SYNDROME [None]
  - FOOT DEFORMITY [None]
  - LIMB MALFORMATION [None]
  - SPEECH DISORDER DEVELOPMENTAL [None]
